FAERS Safety Report 21713181 (Version 2)
Quarter: 2023Q1

REPORT INFORMATION
  Report Type: Spontaneous
  Country: HR (occurrence: HR)
  Receive Date: 20221212
  Receipt Date: 20230107
  Transmission Date: 20230418
  Serious: Yes (Death, Other)
  Sender: FDA-Public Use
  Company Number: HR-AMGEN-HRVSP2022209745

PATIENT

DRUGS (3)
  1. ROMIPLOSTIM [Suspect]
     Active Substance: ROMIPLOSTIM
     Indication: Immune thrombocytopenia
     Dosage: UNK
     Route: 065
  2. ELTROMBOPAG [Concomitant]
     Active Substance: ELTROMBOPAG
     Indication: Immune thrombocytopenia
     Route: 065
  3. AVATROMBOPAG [Concomitant]
     Active Substance: AVATROMBOPAG
     Indication: Immune thrombocytopenia
     Route: 065

REACTIONS (7)
  - Death [Fatal]
  - Hepatotoxicity [Unknown]
  - Splenic infarction [Unknown]
  - Deep vein thrombosis [Unknown]
  - Drug intolerance [Unknown]
  - Therapy non-responder [Unknown]
  - Diarrhoea [Unknown]
